FAERS Safety Report 4836208-0 (Version None)
Quarter: 2005Q4

REPORT INFORMATION
  Report Type: 
  Country: None (occurrence: None)
  Receive Date: 20051118
  Receipt Date: 20051110
  Transmission Date: 20060501
  Serious: Yes (Hospitalization)
  Sender: FDA-Public Use
  Company Number: 200510721BFR

PATIENT
  Age: 80 Year
  Sex: Male
  Weight: 70 kg

DRUGS (3)
  1. CIPROFLOXACIN [Suspect]
     Indication: WOUND
     Dosage: 500 MG, BID, ORAL
     Route: 048
     Dates: start: 20051017
  2. VASTEREL [Concomitant]
  3. PIASCLEDINE [Concomitant]

REACTIONS (6)
  - BLOOD CREATININE INCREASED [None]
  - CONFUSIONAL STATE [None]
  - CREATININE RENAL CLEARANCE DECREASED [None]
  - FEELING DRUNK [None]
  - HEADACHE [None]
  - RENAL FAILURE [None]
